FAERS Safety Report 21004380 (Version 2)
Quarter: 2022Q3

REPORT INFORMATION
  Report Type: Spontaneous
  Country: US (occurrence: US)
  Receive Date: 20220624
  Receipt Date: 20220714
  Transmission Date: 20221027
  Serious: Yes (Death, Hospitalization, Other)
  Sender: FDA-Public Use
  Company Number: US-REDHILL BIOPHARMA-2022RDH00115

PATIENT
  Age: 76 Year
  Sex: Male
  Weight: 107.06 kg

DRUGS (23)
  1. MOVANTIK [Suspect]
     Active Substance: NALOXEGOL OXALATE
     Indication: Constipation
     Dosage: 25 MG, 1X/DAY EVERY MORNING
     Route: 048
     Dates: start: 20211116
  2. TRAMADOL [Suspect]
     Active Substance: TRAMADOL
     Dosage: 50 MG, 6X/DAY (EVERY 4 HOURS)
     Route: 048
     Dates: start: 202112, end: 202202
  3. AMITRIPTYLINE [Suspect]
     Active Substance: AMITRIPTYLINE
     Dosage: 50 MG, 1X/DAY NIGHTLY
     Route: 048
     Dates: end: 202202
  4. DILAUDID [Concomitant]
     Active Substance: HYDROMORPHONE HYDROCHLORIDE
     Dosage: 8 MG, 6X/DAY (EVERY 4 HOURS) AS NEEDED FOR PAIN
     Route: 048
  5. B COMPLEX 100 MULTIVITAMIN [Concomitant]
     Dosage: 1 TABLETS, 1X/DAY
     Route: 048
  6. PLAVIX [Concomitant]
     Active Substance: CLOPIDOGREL BISULFATE
     Dosage: 75 MG, 1X/DAY
     Route: 048
  7. ATORVASTATIN [Concomitant]
     Active Substance: ATORVASTATIN
     Dosage: 40 MG, 1X/DAY
     Route: 048
  8. LEVOTHYROXINE [Concomitant]
     Active Substance: LEVOTHYROXINE
     Dosage: 200 ?G, 1X/DAY EVERY MORNING BEFORE MEAL
     Route: 048
  9. BUSPIRONE [Concomitant]
     Active Substance: BUSPIRONE HYDROCHLORIDE
     Dosage: 15 MG, 2X/DAY
     Route: 048
  10. LASIX [Concomitant]
     Active Substance: FUROSEMIDE
     Dosage: 80 MG, 2X/DAY
     Route: 048
  11. OSCAL D [Concomitant]
     Active Substance: CALCIUM CARBONATE\CHOLECALCIFEROL
     Dosage: UNK, 1X/DAY
     Route: 048
  12. LOPRESSOR [Concomitant]
     Active Substance: METOPROLOL TARTRATE
     Dosage: 50 MG, 2X/DAY
     Route: 048
  13. HYDRALAZINE [Concomitant]
     Active Substance: HYDRALAZINE HYDROCHLORIDE
     Dosage: 100 MG, 2X/DAY
     Route: 048
  14. LANTUS [Concomitant]
     Active Substance: INSULIN GLARGINE
     Dosage: 15 UNITS, 1X/DAY NIGHTLY
     Route: 058
  15. HUMALOG [Concomitant]
     Active Substance: INSULIN LISPRO
     Dosage: UNK, 3X/DAY PER SLIDING SCALE BEFORE MEALS
  16. ASPIRIN [Concomitant]
     Active Substance: ASPIRIN
     Dosage: 81 MG, 1X/DAY
     Route: 048
  17. FLOMAX [Concomitant]
     Active Substance: TAMSULOSIN HYDROCHLORIDE
     Dosage: 0.4 MG, 1X/DAY
     Route: 048
  18. REGLAN [Concomitant]
     Active Substance: METOCLOPRAMIDE HYDROCHLORIDE
     Dosage: 10 MG, 2X/DAY
     Route: 048
  19. GABAPENTIN [Concomitant]
     Active Substance: GABAPENTIN
     Dosage: 600 MG, 3X/DAY
     Route: 048
  20. VITAMIN D3 [Concomitant]
     Active Substance: CHOLECALCIFEROL
     Dosage: 5000 UNITS, 2X/DAY WITH FOOD
     Route: 048
  21. VITAMIN B6 [Concomitant]
     Active Substance: PYRIDOXINE HYDROCHLORIDE
     Dosage: 100 MG, 2X/DAY
     Route: 048
  22. POTASSIUM CHLORIDE [Concomitant]
     Active Substance: POTASSIUM CHLORIDE
     Dosage: 10 MEQ, 1X/DAY
     Route: 048
  23. MELATONIN [Concomitant]
     Active Substance: MELATONIN
     Dosage: 6 MG, 1X/DAY AS NEEDED
     Route: 048

REACTIONS (11)
  - Disease progression [Fatal]
  - Constipation [Unknown]
  - Escherichia urinary tract infection [Unknown]
  - Rectal haemorrhage [Unknown]
  - Faecaloma [Unknown]
  - Dehydration [Unknown]
  - Asthenia [Unknown]
  - Decreased appetite [Recovering/Resolving]
  - Urinary retention [Unknown]
  - Back pain [Unknown]
  - Withdrawal syndrome [Unknown]

NARRATIVE: CASE EVENT DATE: 20211201
